FAERS Safety Report 8869989 (Version 1)
Quarter: 2012Q4

REPORT INFORMATION
  Report Type: 
  Country: US (occurrence: US)
  Receive Date: 20121023
  Receipt Date: 20121023
  Transmission Date: 20130627
  Serious: No
  Sender: FDA-Public Use
  Company Number: US-AMGEN-USASP2012001981

PATIENT
  Age: 68 Year
  Sex: Female
  Weight: 65.76 kg

DRUGS (10)
  1. ENBREL [Suspect]
     Indication: RHEUMATOID ARTHRITIS
     Dosage: 50 mg, qwk
     Route: 058
     Dates: start: 20111028, end: 20120130
  2. METHOTREXATE [Concomitant]
     Dosage: 2.5 mg, UNK
  3. TEKTURNA [Concomitant]
     Dosage: 150 mg, UNK
  4. CYCLOBENZAPRINE [Concomitant]
     Dosage: 10 mg, UNK
  5. LORAZEPAM [Concomitant]
     Dosage: 1 mg, UNK
  6. HYDROXYCHLOROQUINE [Concomitant]
     Dosage: 200 mg, UNK
  7. FOLIC ACID [Concomitant]
     Dosage: 1 mg, UNK
  8. CLONIDINE [Concomitant]
     Dosage: 0.1 mg, UNK
  9. BYSTOLIC [Concomitant]
     Dosage: 2.5 mg, UNK
  10. MICARDIS [Concomitant]
     Dosage: 20 mg, UNK

REACTIONS (8)
  - Paranasal sinus hypersecretion [Not Recovered/Not Resolved]
  - Alopecia [Not Recovered/Not Resolved]
  - Local swelling [Unknown]
  - Pruritus generalised [Not Recovered/Not Resolved]
  - Injection site erythema [Unknown]
  - Injection site pain [Unknown]
  - Injection site swelling [Recovered/Resolved]
  - Injection site reaction [Recovered/Resolved]
